FAERS Safety Report 6280715-3 (Version None)
Quarter: 2009Q3

REPORT INFORMATION
  Report Type: 
  Country: None (occurrence: None)
  Receive Date: 20090724
  Receipt Date: 20081201
  Transmission Date: 20100115
  Serious: No
  Sender: FDA-Public Use
  Company Number: A0758714A

PATIENT
  Age: 54 Year
  Sex: Male

DRUGS (6)
  1. AVANDIA [Suspect]
     Dosage: 4MG PER DAY
     Route: 048
     Dates: start: 20081129
  2. GLIPIZIDE [Suspect]
     Dosage: 5MG PER DAY
     Route: 048
     Dates: start: 20081126
  3. METOPROLOL SUCCINATE [Concomitant]
  4. LIPITOR [Concomitant]
  5. ZETIA [Concomitant]
  6. UNSPECIFIED MEDICATION [Concomitant]
     Indication: TRANSPLANT REJECTION

REACTIONS (1)
  - DRUG INEFFECTIVE [None]
